FAERS Safety Report 17974151 (Version 1)
Quarter: 2020Q3

REPORT INFORMATION
  Report Type: Spontaneous
  Country: US (occurrence: US)
  Receive Date: 20200701
  Receipt Date: 20200701
  Transmission Date: 20201103
  Serious: No
  Sender: FDA-Public Use
  Company Number: None

PATIENT
  Age: 80 Year
  Sex: Female
  Weight: 57.15 kg

DRUGS (11)
  1. PROTONIX [Concomitant]
     Active Substance: PANTOPRAZOLE SODIUM
  2. CYANOCOBALAMIN (VITAMIN B?12) [Concomitant]
  3. AMLODIPINE [Concomitant]
     Active Substance: AMLODIPINE BESYLATE
  4. OLMESARTAN 20MG [Suspect]
     Active Substance: OLMESARTAN
     Indication: HYPERTENSION
     Route: 048
  5. LEVOTHYROXINE. [Concomitant]
     Active Substance: LEVOTHYROXINE
  6. METOPROL SUCCINATE [Concomitant]
     Active Substance: METOPROLOL SUCCINATE
  7. BACLOFEN. [Concomitant]
     Active Substance: BACLOFEN
  8. CLOPIDEGREL [Concomitant]
  9. OLMESARTAN 20MG [Suspect]
     Active Substance: OLMESARTAN
     Indication: ISCHAEMIC HEART DISEASE PROPHYLAXIS
     Route: 048
  10. OLMESARTAN [Concomitant]
     Active Substance: OLMESARTAN
  11. HYDROCHLOROTHIAZIDE. [Concomitant]
     Active Substance: HYDROCHLOROTHIAZIDE

REACTIONS (1)
  - Dizziness [None]

NARRATIVE: CASE EVENT DATE: 20200515
